FAERS Safety Report 17177051 (Version 3)
Quarter: 2020Q2

REPORT INFORMATION
  Report Type: Report from Study
  Country: JP (occurrence: JP)
  Receive Date: 20191219
  Receipt Date: 20200409
  Transmission Date: 20200713
  Serious: Yes (Hospitalization, Other)
  Sender: FDA-Public Use
  Company Number: JP-ALEXION PHARMACEUTICALS INC.-A201900419

PATIENT

DRUGS (21)
  1. STRENSIQ [Suspect]
     Active Substance: ASFOTASE ALFA
     Dosage: 1 MG/KG, SINGLE
     Route: 058
     Dates: start: 20190130, end: 20190130
  2. ALFAROL [Suspect]
     Active Substance: ALFACALCIDOL
     Dosage: 2.5 ML, QD
     Route: 048
     Dates: start: 20180822, end: 20190311
  3. L CARTIN FF [Concomitant]
     Active Substance: LEVOCARNITINE
     Indication: HYPOPHOSPHATASIA
     Dosage: 1.5 ML, TID
     Route: 048
  4. PYDOXAL [Concomitant]
     Active Substance: PYRIDOXAL
     Indication: HYPOPHOSPHATASIA
     Dosage: 66 MG, TID
     Route: 048
     Dates: start: 20190130
  5. GLUCONSAN K [Concomitant]
     Active Substance: POTASSIUM GLUCONATE
     Indication: HYPOPHOSPHATASIA
     Dosage: 1.6 G, TID
     Route: 048
  6. BESOFTEN [Concomitant]
     Active Substance: PENTOSAN POLYSULFATE SODIUM
     Indication: PROPHYLAXIS
     Dosage: 1-2 G, QD
     Dates: start: 20190220
  7. DANTRIUM [Concomitant]
     Active Substance: DANTROLENE SODIUM
     Dosage: 11.75 MG, TID
     Route: 048
     Dates: start: 20180620
  8. HIRUDOID                           /00723701/ [Concomitant]
     Active Substance: PENTOSAN POLYSULFATE SODIUM
     Indication: PROPHYLAXIS
     Dosage: 1-2 G, BID
  9. STRENSIQ [Suspect]
     Active Substance: ASFOTASE ALFA
     Dosage: 1 MG/KG, SINGLE
     Route: 058
     Dates: start: 20181130, end: 20181130
  10. PHENOBAL                           /00023201/ [Concomitant]
     Active Substance: PHENOBARBITAL
     Indication: HYPOPHOSPHATASIA
     Dosage: 0.3 G, BID
     Route: 048
  11. EMLA [Concomitant]
     Active Substance: LIDOCAINE\PRILOCAINE
     Indication: PROPHYLAXIS
     Dosage: 2 DF, TIW
  12. JUZENTAIHOTO                       /07985601/ [Concomitant]
     Active Substance: HERBALS
     Indication: PROPHYLAXIS
     Dosage: 1.3 G, TID
     Route: 048
  13. HYALEIN [Concomitant]
     Active Substance: HYALURONATE SODIUM
     Indication: PROPHYLAXIS
     Dosage: APPROPRIATE AMOUNT, 2-4 TIMES A DAY
     Route: 047
  14. STRENSIQ [Suspect]
     Active Substance: ASFOTASE ALFA
     Indication: HYPOPHOSPHATASIA
     Dosage: 2 MG/KG, TIW
     Route: 058
     Dates: start: 20150925, end: 20181129
  15. STRENSIQ [Suspect]
     Active Substance: ASFOTASE ALFA
     Dosage: 2 MG/KG, TIW
     Route: 058
     Dates: start: 20190131
  16. ADEROXAL [Concomitant]
     Active Substance: PYRIDOXAL PHOSPHATE
     Indication: HYPOPHOSPHATASIA
     Dosage: 0.854 G, TID
     Route: 048
     Dates: end: 20190129
  17. THYRADIN S [Concomitant]
     Active Substance: LEVOTHYROXINE SODIUM
     Indication: HYPOPHOSPHATASIA
     Dosage: 0.3 G, QD
     Route: 048
  18. STRENSIQ [Suspect]
     Active Substance: ASFOTASE ALFA
     Dosage: 2 MG/KG, TIW
     Route: 058
     Dates: start: 20181201, end: 20190129
  19. BIOFERMIN                          /01617201/ [Concomitant]
     Active Substance: DIETARY SUPPLEMENT\PROBIOTICS
     Indication: HYPOPHOSPHATASIA
     Dosage: 0.3 G, TID
     Route: 048
  20. DANTRIUM [Concomitant]
     Active Substance: DANTROLENE SODIUM
     Indication: HYPOPHOSPHATASIA
     Dosage: 8.33 MG, TID
     Route: 048
     Dates: end: 20180619
  21. ALFAROL [Suspect]
     Active Substance: ALFACALCIDOL
     Indication: HYPOPHOSPHATASIA
     Dosage: 1.5 ML, QD
     Route: 048
     Dates: end: 20180821

REACTIONS (6)
  - Dyspnoea [Recovered/Resolved]
  - Acute kidney injury [Recovered/Resolved]
  - Constipation [Not Recovered/Not Resolved]
  - Heart rate decreased [Recovered/Resolved]
  - Pneumonia [Recovered/Resolved]
  - Erythema [Not Recovered/Not Resolved]

NARRATIVE: CASE EVENT DATE: 20180925
